FAERS Safety Report 9005320 (Version 1)
Quarter: 2013Q1

REPORT INFORMATION
  Report Type: Spontaneous
  Country: US (occurrence: US)
  Receive Date: 20130108
  Receipt Date: 20130108
  Transmission Date: 20140127
  Serious: No
  Sender: FDA-Public Use
  Company Number: US-GLAXOSMITHKLINE-A1000768A

PATIENT
  Sex: Male

DRUGS (1)
  1. POTIGA [Suspect]
     Indication: CONVULSION
     Route: 048

REACTIONS (3)
  - Agitation [Recovered/Resolved]
  - Affective disorder [Recovered/Resolved]
  - Abnormal behaviour [Recovered/Resolved]
